FAERS Safety Report 11431232 (Version 7)
Quarter: 2016Q2

REPORT INFORMATION
  Report Type: Report from Study
  Country: GB (occurrence: GB)
  Receive Date: 20150828
  Receipt Date: 20160415
  Transmission Date: 20160815
  Serious: Yes (Death, Hospitalization, Other)
  Sender: FDA-Public Use
  Company Number: GB-ROCHE-1626722

PATIENT
  Age: 63 Year
  Sex: Male

DRUGS (3)
  1. OXYGEN. [Concomitant]
     Active Substance: OXYGEN
  2. AMLODIPINE [Concomitant]
     Active Substance: AMLODIPINE BESYLATE
  3. ESBRIET [Suspect]
     Active Substance: PIRFENIDONE
     Indication: IDIOPATHIC PULMONARY FIBROSIS
     Route: 048
     Dates: start: 20150407

REACTIONS (18)
  - Pruritus [Recovering/Resolving]
  - Chest pain [Unknown]
  - Asthenia [Unknown]
  - Somnolence [Unknown]
  - Dyspnoea [Unknown]
  - Productive cough [Unknown]
  - Neuralgia [Unknown]
  - Malaise [Unknown]
  - Gastrooesophageal reflux disease [Recovered/Resolved]
  - Joint swelling [Unknown]
  - Pneumonia [Unknown]
  - Nausea [Unknown]
  - Urticaria [Unknown]
  - Death [Fatal]
  - Nasopharyngitis [Unknown]
  - Swelling [Unknown]
  - Pulmonary mycosis [Unknown]
  - Hypersensitivity [Unknown]

NARRATIVE: CASE EVENT DATE: 20160312
